FAERS Safety Report 10255522 (Version 1)
Quarter: 2014Q2

REPORT INFORMATION
  Report Type: Spontaneous
  Country: US (occurrence: None)
  Receive Date: 20140522
  Receipt Date: 20140522
  Transmission Date: 20141212
  Serious: No
  Sender: FDA-Public Use
  Company Number: 1000066318

PATIENT
  Age: 61 Year
  Sex: Male

DRUGS (7)
  1. TUDORZA PRESSAIR (ACLIDINIUM BROMIDE) (400 MICROGRAM, POWDER) [Suspect]
     Indication: ASTHMA
     Dosage: 800 MCG (400 MCG, 2 IN 1 D, 11/01/2013 - 01/11/2014 THERAPY
     Route: 055
     Dates: start: 20131101, end: 20140111
  2. DILTIAZEM [Concomitant]
  3. QUINAPRIL [Concomitant]
  4. CLONAZEPAM [Concomitant]
  5. SINGULAIR (MONTELUKAST SODIUM) [Concomitant]
  6. SEROQUEL (QUETIAPINE FUMARATE) [Concomitant]
  7. ASPRIN (ACETYLSALICYLIC ACID) [Concomitant]

REACTIONS (3)
  - Chest discomfort [None]
  - Drug ineffective [None]
  - Off label use [None]
